FAERS Safety Report 11828621 (Version 1)
Quarter: 2015Q4

REPORT INFORMATION
  Report Type: Spontaneous
  Country: US (occurrence: US)
  Receive Date: 20151211
  Receipt Date: 20151211
  Transmission Date: 20160305
  Serious: No
  Sender: FDA-Public Use
  Company Number: US-BAUSCH-BL-2015-009528

PATIENT
  Sex: Male

DRUGS (1)
  1. XENAZINE [Suspect]
     Active Substance: TETRABENAZINE
     Indication: PARKINSONISM
     Dosage: ? TABLET ORALLY THREE TIMES A DAY
     Route: 048

REACTIONS (6)
  - Drooling [Unknown]
  - Insomnia [Unknown]
  - Off label use [Unknown]
  - Tremor [Unknown]
  - Scratch [Unknown]
  - Disturbance in attention [Unknown]
